FAERS Safety Report 25302535 (Version 2)
Quarter: 2025Q2

REPORT INFORMATION
  Report Type: Report from Study
  Country: IT (occurrence: IT)
  Receive Date: 20250512
  Receipt Date: 20250520
  Transmission Date: 20250717
  Serious: Yes (Death)
  Sender: SYNDAX
  Company Number: IT-SYNDAX PHARMACEUTICALS, INC.-2025IT000419

PATIENT
  Age: 38 Year
  Sex: Male
  Weight: 71.7 kg

DRUGS (5)
  1. REVUMENIB SESQUIFUMARATE [Suspect]
     Active Substance: REVUMENIB SESQUIFUMARATE
     Indication: T-cell type acute leukaemia
     Dosage: 270 MILLIGRAM, BID
     Route: 048
     Dates: start: 20250411, end: 20250504
  2. ISAVUCONAZOLE [Concomitant]
     Active Substance: ISAVUCONAZOLE
     Indication: Prophylaxis
     Dosage: 200 MILLIGRAM, DAILY
     Dates: start: 20250331
  3. ACYCLOVIR [Concomitant]
     Active Substance: ACYCLOVIR
     Indication: Prophylaxis
     Dosage: 400 MILLIGRAM, BID
     Dates: start: 20250331
  4. BACTRIM [Concomitant]
     Active Substance: SULFAMETHOXAZOLE\TRIMETHOPRIM
     Indication: Prophylaxis
     Dosage: 960 MILLIGRAM, 2/WEEK TWICE A WEEK
     Dates: start: 20250331
  5. MEROPENEM [Concomitant]
     Active Substance: MEROPENEM
     Indication: Pyrexia
     Dosage: 1 UNK, TID
     Dates: start: 20250418

REACTIONS (1)
  - Disease progression [Fatal]

NARRATIVE: CASE EVENT DATE: 20250505
